FAERS Safety Report 5865759-5 (Version None)
Quarter: 2008Q3

REPORT INFORMATION
  Report Type: 
  Country: None (occurrence: None)
  Receive Date: 20080829
  Receipt Date: 20080822
  Transmission Date: 20090109
  Serious: Yes (Other)
  Sender: FDA-Public Use
  Company Number: PHHY2008GB17181

PATIENT
  Sex: Female

DRUGS (4)
  1. ACLASTA [Suspect]
     Indication: OSTEOPOROSIS
     Dosage: 5 MG
     Route: 042
     Dates: start: 20080718
  2. LANSOPRAZOLE [Concomitant]
     Indication: GASTRITIS
     Dosage: 15 MG, QD
     Route: 048
  3. DIAZEPAM [Concomitant]
     Indication: INSOMNIA
     Dosage: 2 MG AT NIGHT
     Route: 048
  4. CALCICHEW-D3 FORTE [Concomitant]
     Indication: OSTEOPOROSIS
     Dosage: 2 DF, BID
     Route: 048

REACTIONS (6)
  - BLOOD PRESSURE INCREASED [None]
  - BRADYCARDIA [None]
  - COLD SWEAT [None]
  - DIZZINESS [None]
  - HYPERHIDROSIS [None]
  - HYPOTENSION [None]
